FAERS Safety Report 7908572-7 (Version None)
Quarter: 2011Q4

REPORT INFORMATION
  Report Type: 
  Country: None (occurrence: None)
  Receive Date: 20111111
  Receipt Date: 20111108
  Transmission Date: 20120403
  Serious: Yes (Hospitalization, Other)
  Sender: FDA-Public Use
  Company Number: DE-PFIZER INC-2011272559

PATIENT
  Age: 76 Year
  Sex: Female

DRUGS (1)
  1. LYRICA [Suspect]
     Indication: MYELITIS
     Dosage: 75 MG IN THE MORNING AND 200 MG IN THE EVENING

REACTIONS (6)
  - SYNCOPE [None]
  - CARDIAC DISORDER [None]
  - ARRHYTHMIA [None]
  - SWELLING FACE [None]
  - CARDIAC FAILURE [None]
  - HAEMATOMA [None]
